FAERS Safety Report 9849078 (Version 3)
Quarter: 2014Q1

REPORT INFORMATION
  Report Type: Spontaneous
  Country: US (occurrence: US)
  Receive Date: 20140128
  Receipt Date: 20140228
  Transmission Date: 20141002
  Serious: Yes (Hospitalization)
  Sender: FDA-Public Use
  Company Number: PHEH2014US001735

PATIENT
  Age: 10 Year
  Sex: Female
  Weight: 25.2 kg

DRUGS (1)
  1. EXJADE [Suspect]
     Indication: THALASSAEMIA BETA
     Dosage: UNK UKN, UNK
     Route: 048

REACTIONS (5)
  - Liver abscess [Recovering/Resolving]
  - Pain [Recovering/Resolving]
  - Pyrexia [Recovered/Resolved]
  - Hepatic mass [Recovering/Resolving]
  - Hepatic lesion [Recovering/Resolving]
